FAERS Safety Report 13068209 (Version 4)
Quarter: 2017Q1

REPORT INFORMATION
  Report Type: Spontaneous
  Country: GB (occurrence: GB)
  Receive Date: 20161228
  Receipt Date: 20170118
  Transmission Date: 20170428
  Serious: Yes (Other)
  Sender: FDA-Public Use
  Company Number: GB-TEVA-722663ACC

PATIENT
  Sex: Male

DRUGS (1)
  1. FUROSEMIDE. [Suspect]
     Active Substance: FUROSEMIDE
     Indication: PRODUCT USED FOR UNKNOWN INDICATION
     Route: 065

REACTIONS (6)
  - Renal pain [Unknown]
  - Drug dispensing error [Unknown]
  - Pulmonary embolism [Unknown]
  - Dehydration [Unknown]
  - Thrombosis [Unknown]
  - Electrolyte imbalance [Unknown]
